FAERS Safety Report 9681340 (Version 1)
Quarter: 2013Q4

REPORT INFORMATION
  Report Type: Spontaneous
  Country: IT (occurrence: IT)
  Receive Date: 20131111
  Receipt Date: 20131111
  Transmission Date: 20140711
  Serious: Yes (Hospitalization)
  Sender: FDA-Public Use
  Company Number: IT-ABBVIE-13P-083-1166896-00

PATIENT
  Age: 4 Year
  Sex: Male

DRUGS (3)
  1. CYCLOSPORINE [Suspect]
     Indication: HISTIOCYTOSIS HAEMATOPHAGIC
  2. ETANERCEPT [Suspect]
     Indication: HISTIOCYTOSIS HAEMATOPHAGIC
  3. ACYCLOVIR [Concomitant]
     Indication: VARICELLA
     Route: 048

REACTIONS (2)
  - Necrotising fasciitis [Unknown]
  - Drug ineffective [Unknown]
